FAERS Safety Report 4822890-0 (Version None)
Quarter: 2005Q4

REPORT INFORMATION
  Report Type: 
  Country: None (occurrence: None)
  Receive Date: 20051108
  Receipt Date: 20051102
  Transmission Date: 20060501
  Serious: Yes (Death)
  Sender: FDA-Public Use
  Company Number: 2005CG01807

PATIENT
  Age: 75 Year
  Sex: Male
  Weight: 61 kg

DRUGS (16)
  1. NEXIUM [Suspect]
     Route: 048
  2. SELOKEN [Suspect]
     Indication: ATRIAL FIBRILLATION
     Route: 048
     Dates: start: 20020101
  3. SELOKEN [Suspect]
     Indication: ATRIAL FLUTTER
     Route: 048
     Dates: start: 20020101
  4. VFEND [Suspect]
     Indication: CANDIDIASIS
     Route: 048
     Dates: start: 20050818, end: 20050922
  5. DIFFU K [Suspect]
     Route: 048
     Dates: start: 20050914, end: 20050914
  6. DIFFU K [Suspect]
     Route: 048
     Dates: start: 20050916, end: 20050916
  7. DIFFU K [Suspect]
     Route: 048
     Dates: start: 20050917, end: 20050918
  8. TRIATEC [Suspect]
     Indication: ESSENTIAL HYPERTENSION
     Dates: start: 20050601, end: 20050101
  9. TRIATEC [Suspect]
     Route: 048
     Dates: start: 20050901
  10. AMLOR [Suspect]
     Indication: ESSENTIAL HYPERTENSION
     Route: 048
     Dates: start: 20050901
  11. MAG 2 [Concomitant]
  12. COUMADIN [Concomitant]
  13. ZOCOR [Concomitant]
  14. ZOXAN [Concomitant]
  15. TARDYFERON [Concomitant]
  16. LASILIX [Concomitant]

REACTIONS (19)
  - AGITATION [None]
  - ATRIAL FLUTTER [None]
  - BLOOD CHLORIDE DECREASED [None]
  - BLOOD POTASSIUM DECREASED [None]
  - CANDIDIASIS [None]
  - CARBON DIOXIDE ABNORMAL [None]
  - CARDIAC ARREST [None]
  - CONFUSIONAL STATE [None]
  - DYSPNOEA [None]
  - ELECTROCARDIOGRAM QRS COMPLEX PROLONGED [None]
  - ENDOCARDITIS [None]
  - HAEMODIALYSIS [None]
  - HAEMODYNAMIC INSTABILITY [None]
  - ISCHAEMIC STROKE [None]
  - OXYGEN SATURATION DECREASED [None]
  - POST PROCEDURAL COMPLICATION [None]
  - RENAL FAILURE ACUTE [None]
  - RESPIRATORY ARREST [None]
  - TACHYCARDIA [None]
